FAERS Safety Report 4731914-0 (Version None)
Quarter: 2005Q3

REPORT INFORMATION
  Report Type: 
  Country: None (occurrence: None)
  Receive Date: 20050725
  Receipt Date: 20041111
  Transmission Date: 20060218
  Serious: Yes (Life-Threatening, Hospitalization, Disabling, Other)
  Sender: FDA-Public Use
  Company Number: WAES 0411USA02139

PATIENT
  Age: 62 Year
  Sex: Female

DRUGS (11)
  1. VIOXX [Suspect]
     Indication: ARTHRITIS
     Dosage: 25 MG/DAILY/PO
     Route: 048
     Dates: start: 20020208, end: 20030813
  2. VIOXX [Suspect]
     Indication: FIBROMYALGIA
     Dosage: 25 MG/DAILY/PO
     Route: 048
     Dates: start: 20020208, end: 20030813
  3. ATIVAN [Concomitant]
  4. DARVON [Concomitant]
  5. DIOVAN [Concomitant]
  6. EFFEXOR [Concomitant]
  7. NEURONTIN [Concomitant]
  8. PLAVIX [Concomitant]
  9. PRILOSEC [Concomitant]
  10. SKELAXIN [Concomitant]
  11. TRAZODONE HCL [Concomitant]

REACTIONS (2)
  - GASTRIC HAEMORRHAGE [None]
  - GASTRIC ULCER [None]
